FAERS Safety Report 7728323-9 (Version None)
Quarter: 2011Q3

REPORT INFORMATION
  Report Type: 
  Country: None (occurrence: None)
  Receive Date: 20110905
  Receipt Date: 20110831
  Transmission Date: 20111222
  Serious: Yes (Death, Hospitalization)
  Sender: FDA-Public Use
  Company Number: PHHY2011BR61313

PATIENT
  Sex: Female

DRUGS (2)
  1. EXELON [Suspect]
     Indication: DEMENTIA ALZHEIMER'S TYPE
     Dosage: 18 MG/10CM^2, 1 PATCH PER DAY
     Route: 062
  2. DIVELOL [Concomitant]
     Indication: CARDIAC DISORDER
     Dosage: 1 DF, QD

REACTIONS (3)
  - CEREBROVASCULAR ACCIDENT [None]
  - PNEUMONIA [None]
  - HYPERTENSION [None]
